FAERS Safety Report 19089740 (Version 2)
Quarter: 2021Q2

REPORT INFORMATION
  Report Type: Spontaneous
  Country: US (occurrence: US)
  Receive Date: 20210403
  Receipt Date: 20210525
  Transmission Date: 20210717
  Serious: No
  Sender: FDA-Public Use
  Company Number: US-ORGANON-O2103USA003149

PATIENT
  Age: 16 Year
  Sex: Female
  Weight: 53.61 kg

DRUGS (1)
  1. NEXPLANON [Suspect]
     Active Substance: ETONOGESTREL
     Indication: CONTRACEPTION
     Dosage: 68 MG EVERY 3 YEARS; LEFT UPPER ARM
     Route: 059
     Dates: start: 202006

REACTIONS (5)
  - Complication associated with device [Not Recovered/Not Resolved]
  - Pain [Unknown]
  - Device placement issue [Not Recovered/Not Resolved]
  - Hypoaesthesia [Unknown]
  - Paraesthesia [Unknown]

NARRATIVE: CASE EVENT DATE: 202006
